FAERS Safety Report 12570606 (Version 1)
Quarter: 2016Q3

REPORT INFORMATION
  Report Type: Report from Study
  Country: US (occurrence: US)
  Receive Date: 20160719
  Receipt Date: 20160719
  Transmission Date: 20161109
  Serious: Yes (Hospitalization)
  Sender: FDA-Public Use
  Company Number: US-JNJFOC-20160625149

PATIENT
  Age: 81 Year
  Sex: Male

DRUGS (7)
  1. VITAMIN B COMPLEX [Concomitant]
     Active Substance: CYANOCOBALAMIN\DEXPANTHENOL\NIACINAMIDE\PYRIDOXINE HYDROCHLORIDE\RIBOFLAVIN 5^-PHOSPHATE SODIUM\THIAMINE HYDROCHLORIDE\VITAMIN B COMPLEX
  2. ASCORBIC ACID. [Concomitant]
     Active Substance: ASCORBIC ACID
  3. IMBRUVICA [Suspect]
     Active Substance: IBRUTINIB
     Indication: CHRONIC LYMPHOCYTIC LEUKAEMIA
     Route: 048
     Dates: start: 20160616
  4. FISH OIL W/TOCOPHEROL [Concomitant]
  5. ACYCLOVIR. [Concomitant]
     Active Substance: ACYCLOVIR
  6. LISINOPRIL. [Concomitant]
     Active Substance: LISINOPRIL
  7. SIMVASTATIN. [Concomitant]
     Active Substance: SIMVASTATIN

REACTIONS (3)
  - Diarrhoea [Unknown]
  - Wound infection [Unknown]
  - Fall [Unknown]

NARRATIVE: CASE EVENT DATE: 201606
